FAERS Safety Report 5043034-9 (Version None)
Quarter: 2006Q2

REPORT INFORMATION
  Report Type: 
  Country: None (occurrence: None)
  Receive Date: 20060628
  Receipt Date: 20060609
  Transmission Date: 20061013
  Serious: Yes (Hospitalization)
  Sender: FDA-Public Use
  Company Number: 6022708

PATIENT
  Age: 73 Year
  Sex: Male

DRUGS (9)
  1. DETENSIEL (TABLET) (BISOPROLOL FUMARATE) [Suspect]
     Dosage: 0,5 MG (0,5 MG, 1 D)
     Route: 048
  2. CARBOPLATIN [Suspect]
     Indication: BRONCHIAL CARCINOMA
     Dosage: INTRAVENOUS
     Route: 042
     Dates: start: 20050315, end: 20051015
  3. IKOREL (TABLET) (NICORANDIL) [Suspect]
     Dosage: 10 MG (10 MG, 1 D)
     Route: 048
  4. TARCEVA [Suspect]
     Dosage: SEE IMAGE
     Route: 048
     Dates: start: 20051221, end: 20060105
  5. TARCEVA [Suspect]
     Dosage: SEE IMAGE
     Route: 048
     Dates: start: 20060113, end: 20060217
  6. TAXOL [Suspect]
     Indication: BRONCHIAL CARCINOMA
     Dosage: INTRAVENOUS
     Route: 042
     Dates: start: 20050315, end: 20051015
  7. CORVASAL (MOLSIDOMINE) [Concomitant]
  8. PRAVASTATIN [Concomitant]
  9. PROZAC [Concomitant]

REACTIONS (7)
  - ASTHENIA [None]
  - DIARRHOEA [None]
  - DIZZINESS [None]
  - DRUG INTOLERANCE [None]
  - HYPOCAPNIA [None]
  - HYPOXIA [None]
  - INTERSTITIAL LUNG DISEASE [None]
